FAERS Safety Report 10061342 (Version 10)
Quarter: 2015Q3

REPORT INFORMATION
  Report Type: Report from Study
  Country: HU (occurrence: HU)
  Receive Date: 20140407
  Receipt Date: 20150908
  Transmission Date: 20151125
  Serious: Yes (Life-Threatening, Hospitalization)
  Sender: FDA-Public Use
  Company Number: HU-ROCHE-1339910

PATIENT
  Age: 72 Year
  Sex: Female
  Weight: 66 kg

DRUGS (32)
  1. ASPIRIN. [Concomitant]
     Active Substance: ASPIRIN
     Indication: MYOCARDIAL INFARCTION
     Route: 048
     Dates: start: 20121208
  2. TROMBEX (HUNGARY) [Concomitant]
     Route: 048
     Dates: start: 20121209
  3. CLEXANE [Concomitant]
     Active Substance: ENOXAPARIN SODIUM
     Route: 058
     Dates: start: 20140211
  4. ATORVASTATIN [Concomitant]
     Active Substance: ATORVASTATIN
     Route: 048
     Dates: start: 20140117
  5. SANDOZ ROSUVASTATIN [Concomitant]
     Indication: HYPERLIPIDAEMIA
     Route: 048
     Dates: start: 201201, end: 20121207
  6. ASPIRIN. [Concomitant]
     Active Substance: ASPIRIN
     Route: 042
     Dates: start: 20121208, end: 20121208
  7. BISOPROLOL [Concomitant]
     Active Substance: BISOPROLOL
     Route: 048
     Dates: start: 20140117
  8. METHOTREXATE [Concomitant]
     Active Substance: METHOTREXATE
     Indication: RHEUMATOID ARTHRITIS
     Route: 048
     Dates: start: 2005
  9. PRITOR PLUS [Concomitant]
     Active Substance: TELMISARTAN
     Indication: HYPERTENSION
     Route: 048
     Dates: start: 200408
  10. AMLODIPIN [Concomitant]
     Active Substance: AMLODIPINE BESYLATE
     Route: 048
     Dates: start: 20140117
  11. LAEVOLAC [Concomitant]
     Active Substance: LACTULOSE
     Route: 048
     Dates: start: 201401, end: 201401
  12. CAVINTON [Concomitant]
     Active Substance: VINPOCETINE
     Route: 065
     Dates: start: 2014, end: 2014
  13. PROLIA [Concomitant]
     Active Substance: DENOSUMAB
     Indication: OSTEOPOROSIS
     Route: 058
     Dates: start: 201206
  14. QUAMATEL [Concomitant]
     Indication: GASTROOESOPHAGEAL REFLUX DISEASE
     Route: 048
     Dates: start: 200812
  15. ACETYLCYSTEINE. [Concomitant]
     Active Substance: ACETYLCYSTEINE
     Route: 065
     Dates: start: 201401, end: 201401
  16. HYPOTHIAZID [Concomitant]
     Indication: HYPERTENSION
     Route: 048
     Dates: start: 201201
  17. MEDROL [Concomitant]
     Active Substance: METHYLPREDNISOLONE
     Indication: RHEUMATOID ARTHRITIS
     Route: 048
     Dates: start: 201205
  18. CATAFLAM [Concomitant]
     Active Substance: DICLOFENAC POTASSIUM
     Indication: RHEUMATOID ARTHRITIS
     Route: 048
     Dates: start: 2010
  19. XANAX [Concomitant]
     Active Substance: ALPRAZOLAM
     Indication: MYOCARDIAL INFARCTION
     Route: 048
     Dates: start: 20121208
  20. VITAMIN D3 FRESENIUS [Concomitant]
     Indication: OSTEOPOROSIS
     Route: 048
     Dates: start: 2010
  21. SORTIS [Concomitant]
     Active Substance: ATORVASTATIN
     Indication: MYOCARDIAL INFARCTION
     Route: 048
     Dates: start: 20121208
  22. TROMBEX (HUNGARY) [Concomitant]
     Indication: MYOCARDIAL INFARCTION
     Route: 048
     Dates: start: 20121208, end: 20121208
  23. HEPARIN [Concomitant]
     Active Substance: HEPARIN SODIUM
     Indication: MYOCARDIAL INFARCTION
     Route: 042
     Dates: start: 20121208, end: 20121208
  24. SELENIUM [Concomitant]
     Active Substance: SELENIUM
     Route: 065
     Dates: start: 201401, end: 201401
  25. CIPROBAY [Concomitant]
     Active Substance: CIPROFLOXACIN
     Route: 065
     Dates: start: 2014, end: 2014
  26. TOCILIZUMAB [Suspect]
     Active Substance: TOCILIZUMAB
     Indication: RHEUMATOID ARTHRITIS
     Dosage: LAST DOSE PRIOR TO SAE: 8 MG/KG (19/DEC/2013)
     Route: 042
     Dates: start: 20121002
  27. FRONTIN [Concomitant]
     Active Substance: ALPRAZOLAM
     Indication: SLEEP DISORDER
     Route: 048
     Dates: start: 201206
  28. CONCOR [Concomitant]
     Active Substance: BISOPROLOL FUMARATE
     Indication: MYOCARDIAL INFARCTION
     Route: 048
     Dates: start: 20121208
  29. CONTROLOC [Concomitant]
     Active Substance: PANTOPRAZOLE SODIUM
     Indication: MYOCARDIAL INFARCTION
     Route: 048
     Dates: start: 20121208
  30. CLEXANE [Concomitant]
     Active Substance: ENOXAPARIN SODIUM
     Route: 058
     Dates: start: 20140117, end: 20140127
  31. CITROKALCIUM [Concomitant]
     Indication: OSTEOPOROSIS
     Route: 048
     Dates: start: 2010
  32. CONTROLOC [Concomitant]
     Active Substance: PANTOPRAZOLE SODIUM
     Route: 048
     Dates: start: 20140117

REACTIONS (3)
  - Skin necrosis [Recovered/Resolved]
  - Toxic shock syndrome streptococcal [Recovered/Resolved]
  - Abscess [Recovered/Resolved with Sequelae]

NARRATIVE: CASE EVENT DATE: 20140113
